FAERS Safety Report 6267412-5 (Version None)
Quarter: 2009Q3

REPORT INFORMATION
  Report Type: 
  Country: None (occurrence: None)
  Receive Date: 20090714
  Receipt Date: 20090702
  Transmission Date: 20100115
  Serious: Yes (Other)
  Sender: FDA-Public Use
  Company Number: JP-PFIZER INC-2009233108

PATIENT
  Age: 21 Year

DRUGS (2)
  1. UNASYN [Suspect]
     Route: 042
     Dates: start: 20071101
  2. SULPERAZON [Suspect]
     Route: 042
     Dates: start: 20071101

REACTIONS (1)
  - HEPATITIS FULMINANT [None]
